FAERS Safety Report 4912737-6 (Version None)
Quarter: 2006Q1

REPORT INFORMATION
  Report Type: 
  Country: None (occurrence: None)
  Receive Date: 20060215
  Receipt Date: 20060209
  Transmission Date: 20060701
  Serious: Yes (Hospitalization)
  Sender: FDA-Public Use
  Company Number: JP-AVENTIS-200610455JP

PATIENT
  Age: 84 Year

DRUGS (3)
  1. ALLEGRA [Suspect]
     Route: 048
     Dates: start: 20060207
  2. PRORENAL [Concomitant]
  3. CYANOCOBALAMIN [Concomitant]

REACTIONS (2)
  - DYSPNOEA [None]
  - SHOCK [None]
